FAERS Safety Report 14693973 (Version 1)
Quarter: 2018Q1

REPORT INFORMATION
  Report Type: Spontaneous
  Country: CA (occurrence: CA)
  Receive Date: 20180329
  Receipt Date: 20180329
  Transmission Date: 20180509
  Serious: Yes (Life-Threatening, Hospitalization)
  Sender: FDA-Public Use
  Company Number: CA-JNJFOC-20180335872

PATIENT
  Age: 70 Year
  Sex: Female
  Weight: 51.26 kg

DRUGS (6)
  1. XARELTO [Suspect]
     Active Substance: RIVAROXABAN
     Indication: ANTICOAGULANT THERAPY
     Route: 048
  2. XARELTO [Suspect]
     Active Substance: RIVAROXABAN
     Indication: ANTICOAGULANT THERAPY
     Route: 048
  3. BISOPROLOL [Concomitant]
     Active Substance: BISOPROLOL
     Route: 065
  4. GLEEVEC [Concomitant]
     Active Substance: IMATINIB MESYLATE
     Route: 065
  5. IRBESARTAN. [Concomitant]
     Active Substance: IRBESARTAN
     Route: 065
  6. TRAMADOL HYDROCHLORIDE. [Concomitant]
     Active Substance: TRAMADOL HYDROCHLORIDE
     Route: 065

REACTIONS (7)
  - Arthralgia [Recovering/Resolving]
  - Balance disorder [Recovering/Resolving]
  - Contusion [Recovering/Resolving]
  - Haematuria [Recovering/Resolving]
  - Vessel puncture site haemorrhage [Recovering/Resolving]
  - Blood sodium decreased [Recovering/Resolving]
  - Vomiting [Recovering/Resolving]
